FAERS Safety Report 11536119 (Version 1)
Quarter: 2015Q3

REPORT INFORMATION
  Report Type: Spontaneous
  Country: US (occurrence: US)
  Receive Date: 20150922
  Receipt Date: 20150922
  Transmission Date: 20151125
  Serious: No
  Sender: FDA-Public Use
  Company Number: US-FRI-1000076994

PATIENT
  Sex: Male

DRUGS (1)
  1. LINZESS [Suspect]
     Active Substance: LINACLOTIDE
     Indication: IRRITABLE BOWEL SYNDROME

REACTIONS (5)
  - Off label use [Unknown]
  - Intentional product misuse [Unknown]
  - Faeces discoloured [Unknown]
  - Drug ineffective [Unknown]
  - Diarrhoea [Unknown]
